FAERS Safety Report 4313366-8 (Version None)
Quarter: 2004Q1

REPORT INFORMATION
  Report Type: 
  Country: None (occurrence: None)
  Receive Date: 20040304
  Receipt Date: 20040220
  Transmission Date: 20041129
  Serious: Yes (Hospitalization)
  Sender: FDA-Public Use
  Company Number: 2003027820

PATIENT
  Age: 48 Year
  Sex: Female

DRUGS (3)
  1. ATORVASTATIN (ATORVASTATIN) [Suspect]
     Indication: DYSLIPIDAEMIA
     Dosage: 10 MG (DAILY), ORAL
     Route: 048
     Dates: start: 20020401, end: 20031201
  2. DILTIAZEM [Concomitant]
  3. PROPATYLNITRATE (PROPATYLNITRATE) [Concomitant]

REACTIONS (4)
  - ARTERIAL OCCLUSIVE DISEASE [None]
  - CHEST PAIN [None]
  - INFLAMMATION [None]
  - SUTURE RELATED COMPLICATION [None]
